FAERS Safety Report 4294500-5 (Version None)
Quarter: 2004Q1

REPORT INFORMATION
  Report Type: 
  Country: None (occurrence: None)
  Receive Date: 20040211
  Receipt Date: 20040202
  Transmission Date: 20041129
  Serious: Yes (Hospitalization)
  Sender: FDA-Public Use
  Company Number: 200401709

PATIENT
  Age: 55 Year
  Sex: Female
  Weight: 62 kg

DRUGS (7)
  1. IBUPROFEN [Suspect]
     Indication: ARTHRALGIA
     Dosage: 400 MG TID PO
     Route: 048
     Dates: start: 20031201, end: 20040101
  2. VIREAD [Suspect]
     Dosage: 300 MG QD PO
     Route: 048
     Dates: start: 20030201, end: 20040101
  3. KALETRA [Concomitant]
  4. ABACAVIR [Concomitant]
  5. ATENOLOL [Concomitant]
  6. FLUCONAZOLE [Concomitant]
  7. SEPTRIN (TRIMEPTHOPRIM/SULPAMETHOXAZOLE) [Concomitant]

REACTIONS (4)
  - METABOLIC ACIDOSIS [None]
  - PROTEINURIA [None]
  - RENAL FAILURE ACUTE [None]
  - RENAL TUBULAR ACIDOSIS [None]
